FAERS Safety Report 15151486 (Version 1)
Quarter: 2018Q3

REPORT INFORMATION
  Report Type: Spontaneous
  Country: BR (occurrence: BR)
  Receive Date: 20180716
  Receipt Date: 20180716
  Transmission Date: 20181010
  Serious: Yes (Hospitalization)
  Sender: FDA-Public Use
  Company Number: BR-B.I. PHARMACEUTICALS,INC./RIDGEFIELD-2018-BI-035974

PATIENT
  Sex: Female
  Weight: 59 kg

DRUGS (1)
  1. ATENSINA [Suspect]
     Active Substance: CLONIDINE
     Indication: HYPERTENSION
     Route: 048

REACTIONS (3)
  - Hypertension [Unknown]
  - Drug ineffective [Unknown]
  - Malaise [Unknown]
